FAERS Safety Report 13236323 (Version 1)
Quarter: 2017Q1

REPORT INFORMATION
  Report Type: Spontaneous
  Country: US (occurrence: US)
  Receive Date: 20170215
  Receipt Date: 20170215
  Transmission Date: 20170428
  Serious: No
  Sender: FDA-Public Use
  Company Number: US-ALLERGAN-1663630US

PATIENT
  Sex: Female

DRUGS (1)
  1. BOTOX COSMETIC [Suspect]
     Active Substance: ONABOTULINUMTOXINA
     Indication: PRODUCT USED FOR UNKNOWN INDICATION
     Dosage: UNK UNK, SINGLE
     Route: 030
     Dates: start: 20160114, end: 20160114

REACTIONS (6)
  - Eye swelling [Unknown]
  - Swelling face [Unknown]
  - Counterfeit drug administered [Unknown]
  - Nasal oedema [Unknown]
  - Swelling face [Unknown]
  - Sinusitis [Unknown]

NARRATIVE: CASE EVENT DATE: 20160114
